FAERS Safety Report 6262035-6 (Version None)
Quarter: 2009Q3

REPORT INFORMATION
  Report Type: 
  Country: None (occurrence: None)
  Receive Date: 20090707
  Receipt Date: 20090707
  Transmission Date: 20100115
  Serious: Yes (Other)
  Sender: FDA-Public Use
  Company Number: None

PATIENT
  Age: 58 Year
  Sex: Female
  Weight: 78.4723 kg

DRUGS (4)
  1. NIASPAN [Suspect]
     Indication: CEREBROVASCULAR ACCIDENT PROPHYLAXIS
     Dosage: 500 MG 1 TABLET PM PO
     Route: 048
     Dates: start: 20090701, end: 20090701
  2. NIASPAN [Suspect]
     Indication: HIGH DENSITY LIPOPROTEIN DECREASED
     Dosage: 500 MG 1 TABLET PM PO
     Route: 048
     Dates: start: 20090701, end: 20090701
  3. NIASPAN [Suspect]
     Indication: CEREBROVASCULAR ACCIDENT PROPHYLAXIS
     Dosage: 500 MG 1 TABLET PM PO
     Route: 048
     Dates: start: 20090702, end: 20090702
  4. NIASPAN [Suspect]
     Indication: HIGH DENSITY LIPOPROTEIN DECREASED
     Dosage: 500 MG 1 TABLET PM PO
     Route: 048
     Dates: start: 20090702, end: 20090702

REACTIONS (5)
  - BLOOD TRIGLYCERIDES INCREASED [None]
  - DIZZINESS [None]
  - FATIGUE [None]
  - HYPERTENSION [None]
  - MALAISE [None]
